FAERS Safety Report 15318438 (Version 3)
Quarter: 2018Q4

REPORT INFORMATION
  Report Type: Spontaneous
  Country: US (occurrence: US)
  Receive Date: 20180825
  Receipt Date: 20181114
  Transmission Date: 20190204
  Serious: Yes (Other)
  Sender: FDA-Public Use
  Company Number: US-009507513-1808USA007993

PATIENT
  Sex: Male
  Weight: 64.4 kg

DRUGS (17)
  1. INTRON A [Suspect]
     Active Substance: INTERFERON ALFA-2B
     Indication: LUNG CARCINOMA CELL TYPE UNSPECIFIED STAGE 0
     Dosage: 18MM UNIT /3ML MDV (300,000 UNITS( 0.05ML)),THREE TIMES WEEKLY
     Route: 023
  2. POTASSIUM (UNSPECIFIED) [Concomitant]
     Active Substance: POTASSIUM
  3. ALPRAZOLAM. [Concomitant]
     Active Substance: ALPRAZOLAM
  4. OMEPRAZOLE. [Concomitant]
     Active Substance: OMEPRAZOLE
  5. FLUCONAZOLE. [Concomitant]
     Active Substance: FLUCONAZOLE
  6. TAMSULOSIN HYDROCHLORIDE. [Concomitant]
     Active Substance: TAMSULOSIN HYDROCHLORIDE
  7. ATORVASTATIN [Concomitant]
     Active Substance: ATORVASTATIN
  8. DONEPEZIL. [Concomitant]
     Active Substance: DONEPEZIL
  9. MIDODRINE HYDROCHLORIDE. [Concomitant]
     Active Substance: MIDODRINE HYDROCHLORIDE
  10. LAMOTRIGINE. [Concomitant]
     Active Substance: LAMOTRIGINE
  11. HYDROCHLOROTHIAZIDE (+) LOSARTAN POTASSIUM [Concomitant]
     Active Substance: HYDROCHLOROTHIAZIDE\LOSARTAN POTASSIUM
  12. IPRATROPIUM BROMIDE. [Concomitant]
     Active Substance: IPRATROPIUM BROMIDE
  13. MIRTAZAPINE. [Concomitant]
     Active Substance: MIRTAZAPINE
  14. QUETIAPINE FUMARATE. [Concomitant]
     Active Substance: QUETIAPINE FUMARATE
  15. GILOTRIF [Concomitant]
     Active Substance: AFATINIB
  16. CARISOPRODOL. [Concomitant]
     Active Substance: CARISOPRODOL
  17. CEFADROXIL. [Concomitant]
     Active Substance: CEFADROXIL

REACTIONS (6)
  - Nausea [Unknown]
  - Agitation [Unknown]
  - Decreased appetite [Unknown]
  - Rash [Unknown]
  - Skin disorder [Unknown]
  - Haemorrhage [Unknown]
